FAERS Safety Report 4519279-0 (Version None)
Quarter: 2004Q4

REPORT INFORMATION
  Report Type: 
  Country: None (occurrence: None)
  Receive Date: 20041201
  Receipt Date: 20041118
  Transmission Date: 20050328
  Serious: Yes (Hospitalization, Other)
  Sender: FDA-Public Use
  Company Number: 2004055784

PATIENT
  Age: 70 Year
  Sex: Male
  Weight: 75 kg

DRUGS (3)
  1. SORTIS (ATORVASTATIN) [Suspect]
     Indication: LIPID METABOLISM DISORDER
     Dosage: 20 MG (20 MG, 1 IN 1 D), ORAL
     Route: 048
     Dates: start: 20030401, end: 20040804
  2. RAMIPRIL [Concomitant]
  3. PHENPROCOUMON (PHENPROCOUMON) [Concomitant]

REACTIONS (13)
  - ALANINE AMINOTRANSFERASE INCREASED [None]
  - ASPARTATE AMINOTRANSFERASE INCREASED [None]
  - BLOOD CREATINE PHOSPHOKINASE MB INCREASED [None]
  - GOITRE [None]
  - HYPOTONIA [None]
  - MUSCLE NECROSIS [None]
  - MYOPATHY [None]
  - MYOSITIS [None]
  - OEDEMA PERIPHERAL [None]
  - POLYMYALGIA RHEUMATICA [None]
  - RED BLOOD CELL SEDIMENTATION RATE INCREASED [None]
  - RHABDOMYOLYSIS [None]
  - TROPONIN T INCREASED [None]
